FAERS Safety Report 5293810-2 (Version None)
Quarter: 2007Q2

REPORT INFORMATION
  Report Type: 
  Country: None (occurrence: None)
  Receive Date: 20070411
  Receipt Date: 20070402
  Transmission Date: 20071010
  Serious: Yes (Death, Hospitalization)
  Sender: FDA-Public Use
  Company Number: US-PFIZER INC-2006009526

PATIENT
  Sex: Male
  Weight: 138.3 kg

DRUGS (1)
  1. VALDECOXIB [Suspect]
     Indication: PAIN
     Dates: start: 20030301, end: 20030901

REACTIONS (1)
  - CEREBROVASCULAR ACCIDENT [None]
